FAERS Safety Report 9170525 (Version 1)
Quarter: 2013Q1

REPORT INFORMATION
  Report Type: Spontaneous
  Country: US (occurrence: None)
  Receive Date: 20130319
  Receipt Date: 20130319
  Transmission Date: 20140127
  Serious: Yes (Death)
  Sender: FDA-Public Use
  Company Number: None

PATIENT
  Age: 80 Year
  Sex: Female

DRUGS (1)
  1. AVASTIN [Suspect]
     Indication: AGE-RELATED MACULAR DEGENERATION
     Dosage: 1   EVERY FOUR WEEKS   INTRAOCULAR?12/17/12  -  2/14/13
     Route: 031
     Dates: start: 20121217, end: 20130214

REACTIONS (1)
  - Death [None]
